FAERS Safety Report 11861531 (Version 1)
Quarter: 2015Q4

REPORT INFORMATION
  Report Type: Spontaneous
  Country: GB (occurrence: GB)
  Receive Date: 20151222
  Receipt Date: 20151222
  Transmission Date: 20160305
  Serious: Yes (Life-Threatening, Hospitalization)
  Sender: FDA-Public Use
  Company Number: GB-MYLANLABS-2015M1046275

PATIENT

DRUGS (3)
  1. DIAZEPAM. [Suspect]
     Active Substance: DIAZEPAM
     Indication: CORONARY ANGIOPLASTY
     Route: 065
  2. HEPARIN [Suspect]
     Active Substance: HEPARIN SODIUM
     Indication: CORONARY ANGIOPLASTY
     Route: 065
  3. VISIPAQUE [Suspect]
     Active Substance: IODIXANOL
     Indication: CORONARY ANGIOPLASTY
     Route: 065

REACTIONS (3)
  - Depressed level of consciousness [Recovered/Resolved]
  - Brain stem infarction [Unknown]
  - Anaphylactic reaction [Unknown]
